FAERS Safety Report 5277194-1 (Version None)
Quarter: 2007Q1

REPORT INFORMATION
  Report Type: 
  Country: None (occurrence: None)
  Receive Date: 20070327
  Receipt Date: 20070316
  Transmission Date: 20070707
  Serious: Yes (Other)
  Sender: FDA-Public Use
  Company Number: ZA-GLAXOSMITHKLINE-B0463284A

PATIENT
  Sex: Female

DRUGS (1)
  1. GRANDPA POWDER [Suspect]
     Indication: HEADACHE

REACTIONS (1)
  - DRUG DEPENDENCE [None]
